FAERS Safety Report 6164089-4 (Version None)
Quarter: 2009Q2

REPORT INFORMATION
  Report Type: 
  Country: None (occurrence: None)
  Receive Date: 20090422
  Receipt Date: 20090416
  Transmission Date: 20091009
  Serious: Yes (Other)
  Sender: FDA-Public Use
  Company Number: A0779741A

PATIENT
  Age: 39 Year
  Sex: Female

DRUGS (5)
  1. LAMOTRIGINE [Suspect]
     Indication: BIPOLAR DISORDER
     Dosage: 400MG PER DAY
     Route: 048
  2. FOLIC ACID [Concomitant]
     Dosage: 4MG PER DAY
     Route: 048
  3. VITAMIN TAB [Concomitant]
     Dosage: 1TAB PER DAY
     Route: 048
  4. SYNTHROID [Concomitant]
     Dosage: 100MCG PER DAY
  5. LORAZEPAM [Concomitant]
     Dosage: .5MG PER DAY

REACTIONS (2)
  - ABORTION SPONTANEOUS [None]
  - DRUG EXPOSURE DURING PREGNANCY [None]
